FAERS Safety Report 4331534-6 (Version None)
Quarter: 2004Q2

REPORT INFORMATION
  Report Type: 
  Country: None (occurrence: None)
  Receive Date: 20040402
  Receipt Date: 20040329
  Transmission Date: 20050107
  Serious: Yes (Hospitalization)
  Sender: FDA-Public Use
  Company Number: US-MERCK-0403USA02520

PATIENT
  Age: 81 Year
  Sex: Female

DRUGS (2)
  1. LIPITOR [Suspect]
     Route: 048
     Dates: start: 20021015
  2. ZOCOR [Suspect]
     Route: 048
     Dates: start: 20021013

REACTIONS (2)
  - MEDICATION ERROR [None]
  - RENAL FAILURE ACUTE [None]
